FAERS Safety Report 12977112 (Version 2)
Quarter: 2016Q4

REPORT INFORMATION
  Report Type: Spontaneous
  Country: FI (occurrence: FI)
  Receive Date: 20161128
  Receipt Date: 20161209
  Transmission Date: 20170207
  Serious: Yes (Hospitalization, Other)
  Sender: FDA-Public Use
  Company Number: FI-009507513-1611FIN012566

PATIENT
  Age: 55 Year
  Sex: Male

DRUGS (13)
  1. ATORVASTATIN [Concomitant]
     Active Substance: ATORVASTATIN
  2. NEORECORMON [Concomitant]
     Active Substance: ERYTHROPOIETIN
  3. CELLCEPT [Concomitant]
     Active Substance: MYCOPHENOLATE MOFETIL\MYCOPHENOLATE MOFETIL HYDROCHLORIDE
  4. ETALPHA [Concomitant]
     Active Substance: ALFACALCIDOL
  5. CARVEDILOL. [Concomitant]
     Active Substance: CARVEDILOL
  6. OBSIDAN (FERROUS GLYCINE SULFATE) [Concomitant]
  7. LOSARTAN POTASSIUM. [Concomitant]
     Active Substance: LOSARTAN POTASSIUM
     Route: 048
  8. LANTUS [Concomitant]
     Active Substance: INSULIN GLARGINE
  9. ALLONOL [Concomitant]
     Active Substance: ALLOPURINOL
  10. PHYSIOTENS [Concomitant]
     Active Substance: MOXONIDINE
  11. JANUVIA [Suspect]
     Active Substance: SITAGLIPTIN PHOSPHATE
     Dosage: UNK, DOSE HAS BEEN THE SAME ALL THE TIME.
     Route: 048
     Dates: start: 2013, end: 201611
  12. LASIX [Concomitant]
     Active Substance: FUROSEMIDE
  13. SANDIMMUN [Concomitant]
     Active Substance: CYCLOSPORINE

REACTIONS (2)
  - Pancreatitis chronic [Unknown]
  - Pancreatitis acute [Recovering/Resolving]

NARRATIVE: CASE EVENT DATE: 201611
